FAERS Safety Report 10158648 (Version 2)
Quarter: 2014Q2

REPORT INFORMATION
  Report Type: Report from Study
  Country: JP (occurrence: JP)
  Receive Date: 20140508
  Receipt Date: 20140508
  Transmission Date: 20141212
  Serious: Yes (Death, Other)
  Sender: FDA-Public Use
  Company Number: JP-ROCHE-685982

PATIENT
  Age: 85 Year
  Sex: Female

DRUGS (18)
  1. MABTHERA [Suspect]
     Indication: B-CELL LYMPHOMA
     Route: 042
     Dates: start: 20091006, end: 20091013
  2. ZEVALIN [Suspect]
     Indication: B-CELL LYMPHOMA
     Dosage: 14.8 MBQ/KG
     Route: 042
  3. ZEVALIN INDIUM [Concomitant]
     Indication: B-CELL LYMPHOMA
     Dosage: SINGLE
     Route: 042
     Dates: start: 20091006, end: 20091006
  4. POLARAMINE [Concomitant]
     Indication: PROPHYLAXIS
     Dosage: SINGLE
     Route: 048
     Dates: start: 20091006, end: 20091013
  5. POLARAMINE [Concomitant]
     Dosage: SINGLE
     Route: 048
     Dates: start: 20091006, end: 20091013
  6. CALONAL [Concomitant]
     Indication: PROPHYLAXIS
     Dosage: SINGLE
     Route: 048
     Dates: start: 20091006, end: 20091013
  7. CALONAL [Concomitant]
     Dosage: SINGLE
     Route: 048
     Dates: start: 20091006, end: 20091013
  8. DECADRON PHOSPHATE [Concomitant]
     Indication: PROPHYLAXIS
     Dosage: SINGLE
     Route: 042
  9. DECADRON PHOSPHATE [Concomitant]
     Dosage: SINGLE
     Route: 042
  10. APLACE [Concomitant]
     Indication: GASTRITIS
     Route: 048
  11. HERBESSER [Concomitant]
     Indication: HYPERTENSION
     Route: 048
  12. TOCOPHERYL NICOTINATE [Concomitant]
     Indication: HYPERLIPIDAEMIA
     Route: 048
  13. METHYCOBAL [Concomitant]
     Indication: NEURITIS
     Route: 048
  14. LENDORMIN [Concomitant]
     Indication: INSOMNIA
     Dosage: 0.125 MG, PRN
     Route: 048
  15. WARFARIN [Concomitant]
     Indication: ATRIAL FIBRILLATION
     Dosage: 2 MG, QD
     Route: 048
  16. GENTACIN [Concomitant]
     Indication: DECUBITUS ULCER
     Dosage: UNK
     Route: 061
  17. LECICARBON [Concomitant]
     Indication: CONSTIPATION
     Dosage: UNK
     Route: 054
  18. JUVELA [Concomitant]
     Indication: DECUBITUS ULCER
     Dosage: UNK
     Route: 061

REACTIONS (2)
  - Death [Fatal]
  - Neutropenia [Recovered/Resolved]
